FAERS Safety Report 20123501 (Version 1)
Quarter: 2021Q4

REPORT INFORMATION
  Report Type: Spontaneous
  Country: BR (occurrence: BR)
  Receive Date: 20211129
  Receipt Date: 20211129
  Transmission Date: 20220303
  Serious: No
  Sender: FDA-Public Use
  Company Number: BR-LUPIN PHARMACEUTICALS INC.-2021-23092

PATIENT
  Age: 36 Year
  Sex: Female

DRUGS (3)
  1. HYDROXYCHLOROQUINE [Suspect]
     Active Substance: HYDROXYCHLOROQUINE
     Indication: Sinonasal papilloma
     Dosage: UNK
     Route: 065
  2. ZINC [Suspect]
     Active Substance: ZINC
     Indication: Sinonasal papilloma
     Dosage: UNK
     Route: 065
  3. AFATINIB [Suspect]
     Active Substance: AFATINIB
     Indication: Sinonasal papilloma
     Dosage: UNK
     Route: 065

REACTIONS (2)
  - Off label use [Unknown]
  - Drug ineffective for unapproved indication [Unknown]
